FAERS Safety Report 5557968-X (Version None)
Quarter: 2007Q4

REPORT INFORMATION
  Report Type: 
  Country: None (occurrence: None)
  Receive Date: 20071214
  Receipt Date: 20071206
  Transmission Date: 20080405
  Serious: Yes (Other)
  Sender: FDA-Public Use
  Company Number: PHBS2007JP17939

PATIENT
  Age: 91 Year
  Sex: Female

DRUGS (4)
  1. FEMARA [Suspect]
     Indication: BREAST CANCER
     Dosage: 2.5 MG/D
     Route: 048
     Dates: start: 20061201
  2. SYMMETREL [Concomitant]
     Dosage: 50 MG/D
     Route: 048
     Dates: start: 20060901
  3. GLYSENNID [Concomitant]
     Dosage: 12 MG/D
     Route: 048
     Dates: start: 20060901
  4. TIAPRIDE HYDROCHLORIDE [Concomitant]
     Dosage: 25 MG/D
     Route: 048
     Dates: start: 20071107

REACTIONS (3)
  - CHEST X-RAY ABNORMAL [None]
  - INTERSTITIAL LUNG DISEASE [None]
  - SPUTUM CULTURE POSITIVE [None]
